FAERS Safety Report 4776227-6 (Version None)
Quarter: 2005Q3

REPORT INFORMATION
  Report Type: 
  Country: None (occurrence: None)
  Receive Date: 20050922
  Receipt Date: 20050915
  Transmission Date: 20060218
  Serious: Yes (Death)
  Sender: FDA-Public Use
  Company Number: US-JNJFOC-20050904089

PATIENT
  Sex: Female
  Weight: 57.61 kg

DRUGS (15)
  1. FLEXERIL [Suspect]
     Indication: DRUG USE FOR UNKNOWN INDICATION
  2. PREDNISONE [Concomitant]
  3. SINGULAIR [Concomitant]
  4. ALTACE [Concomitant]
  5. MEVACOR [Concomitant]
  6. FOSAMAX [Concomitant]
  7. HYDROCHLOROTHIAZIDE [Concomitant]
  8. SEREVENT [Concomitant]
  9. ATIVAN [Concomitant]
  10. POTASSIUM [Concomitant]
     Dosage: PRN
  11. ALBUTEROL [Concomitant]
  12. DUONEB [Concomitant]
  13. DUONEB [Concomitant]
  14. LORTAB [Concomitant]
  15. LORTAB [Concomitant]
     Dosage: 5/500 PRN

REACTIONS (2)
  - DEATH [None]
  - TERMINAL STATE [None]
